FAERS Safety Report 6156644-2 (Version None)
Quarter: 2009Q2

REPORT INFORMATION
  Report Type: 
  Country: None (occurrence: None)
  Receive Date: 20090416
  Receipt Date: 20090408
  Transmission Date: 20091009
  Serious: Yes (Disabling)
  Sender: FDA-Public Use
  Company Number: CN-BRISTOL-MYERS SQUIBB COMPANY-14588057

PATIENT
  Age: 15 Year
  Sex: Male

DRUGS (4)
  1. ABILIFY [Suspect]
     Indication: SCHIZOPHRENIA
     Dosage: 10MG/D: 16JAN09 TO 30JAN09(15DAYS) DOSE INCREASED TO 15MG/DAY FROM 31JAN2009-ONGOING
     Route: 048
     Dates: start: 20090116
  2. RISPERIDONE [Concomitant]
     Dosage: TABLET FORM
  3. SERTRALINE HCL [Concomitant]
     Dosage: TABLET FORM
  4. LITHIUM CARBONATE [Concomitant]

REACTIONS (3)
  - DEMYELINATION [None]
  - EXTRAPYRAMIDAL DISORDER [None]
  - VISUAL IMPAIRMENT [None]
